FAERS Safety Report 20170704 (Version 4)
Quarter: 2024Q1

REPORT INFORMATION
  Report Type: Spontaneous
  Country: US (occurrence: US)
  Receive Date: 20211210
  Receipt Date: 20240123
  Transmission Date: 20240410
  Serious: No
  Sender: FDA-Public Use
  Company Number: US-PFIZER INC-2021592874

PATIENT
  Age: 78 Year
  Sex: Male

DRUGS (1)
  1. IBRANCE [Suspect]
     Active Substance: PALBOCICLIB
     Indication: Malignant connective tissue neoplasm
     Dosage: 125 MG

REACTIONS (3)
  - Hypoacusis [Unknown]
  - Off label use [Unknown]
  - Drug effective for unapproved indication [Unknown]
